FAERS Safety Report 6659715-7 (Version None)
Quarter: 2010Q1

REPORT INFORMATION
  Report Type: 
  Country: None (occurrence: None)
  Receive Date: 20100325
  Receipt Date: 20100310
  Transmission Date: 20100710
  Serious: Yes (Hospitalization)
  Sender: FDA-Public Use
  Company Number: 2010BI008506

PATIENT
  Age: 58 Year
  Sex: Female

DRUGS (9)
  1. ZEVALIN [Suspect]
     Indication: FOLLICLE CENTRE LYMPHOMA, FOLLICULAR GRADE I, II, III STAGE I
     Dosage: 762 MBQ; 1X; IV
     Route: 042
     Dates: start: 20090714, end: 20090721
  2. RITUXIMAB [Concomitant]
  3. POLARAMINE [Concomitant]
  4. LOXONIN [Concomitant]
  5. . [Concomitant]
  6. CYCLOPHOSPHAMIDE [Concomitant]
  7. DOXORUBICIN HCL [Concomitant]
  8. VINCRISTINE [Concomitant]
  9. PREDNISOLONE [Concomitant]

REACTIONS (4)
  - ALANINE AMINOTRANSFERASE INCREASED [None]
  - ASPARTATE AMINOTRANSFERASE INCREASED [None]
  - LIVER DISORDER [None]
  - PNEUMONIA [None]
